FAERS Safety Report 9370973 (Version 1)
Quarter: 2013Q2

REPORT INFORMATION
  Report Type: Report from Study
  Country: AU (occurrence: AU)
  Receive Date: 20130627
  Receipt Date: 20130627
  Transmission Date: 20140414
  Serious: Yes (Other)
  Sender: FDA-Public Use
  Company Number: AU-ROCHE-1241007

PATIENT
  Sex: Male

DRUGS (1)
  1. RANIBIZUMAB [Suspect]
     Indication: AGE-RELATED MACULAR DEGENERATION
     Route: 050
     Dates: start: 20120529

REACTIONS (7)
  - Neoplasm malignant [Unknown]
  - Cardiac disorder [Unknown]
  - Fatigue [Unknown]
  - Ocular hyperaemia [Recovering/Resolving]
  - Inappropriate schedule of drug administration [Unknown]
  - No therapeutic response [Unknown]
  - Visual impairment [Unknown]
